FAERS Safety Report 9115320 (Version 3)
Quarter: 2013Q1

REPORT INFORMATION
  Report Type: Spontaneous
  Country: JP (occurrence: JP)
  Receive Date: 20130225
  Receipt Date: 20130320
  Transmission Date: 20140127
  Serious: Yes (Death)
  Sender: FDA-Public Use
  Company Number: JP-ROCHE-1194159

PATIENT
  Age: 75 Year
  Sex: Male
  Weight: 62 kg

DRUGS (9)
  1. AVASTIN [Suspect]
     Indication: RECTAL CANCER METASTATIC
     Route: 041
     Dates: start: 20091208, end: 20130115
  2. XELODA [Suspect]
     Indication: RECTAL CANCER METASTATIC
     Dosage: 2 WEEKS ADMINISTRATION FOLLOWED BY 1 WEEK REST
     Route: 048
     Dates: start: 20091208
  3. XELODA [Suspect]
     Indication: RECTAL CANCER METASTATIC
     Dosage: 2 WEEKS ADMINISTRATION FOLLOWED BY 1 WEEK REST
     Route: 048
     Dates: start: 20100126
  4. XELODA [Suspect]
     Indication: RECTAL CANCER METASTATIC
     Dosage: 2 WEEKS ADMINISTRATION FOLLOWED BY 1 WEEK REST
     Route: 048
     Dates: start: 20110621
  5. XELODA [Suspect]
     Indication: RECTAL CANCER METASTATIC
     Dosage: 2 WEEKS ADMINISTRATION FOLLOWED BY 1 WEEK REST
     Route: 048
     Dates: start: 20130205, end: 20130216
  6. NIFEDIPINE [Concomitant]
     Indication: HYPERTENSION
     Route: 048
     Dates: end: 20130216
  7. OXYCONTIN [Concomitant]
     Indication: CANCER PAIN
     Route: 048
     Dates: start: 20091116, end: 20130216
  8. CELECOX [Concomitant]
     Indication: CANCER PAIN
     Route: 048
     Dates: start: 20100316, end: 20130216
  9. VALSARTAN [Concomitant]
     Indication: HYPERTENSION
     Route: 048
     Dates: start: 20100406, end: 20130216

REACTIONS (4)
  - Rectal haemorrhage [Fatal]
  - Disease progression [Fatal]
  - Gastritis [Not Recovered/Not Resolved]
  - Productive cough [Not Recovered/Not Resolved]
